FAERS Safety Report 7790747-1 (Version None)
Quarter: 2011Q3

REPORT INFORMATION
  Report Type: 
  Country: None (occurrence: None)
  Receive Date: 20110930
  Receipt Date: 20110921
  Transmission Date: 20111222
  Serious: Yes (Hospitalization, Other)
  Sender: FDA-Public Use
  Company Number: DE-ASTRAZENECA-2011SE56612

PATIENT
  Age: 50 Year
  Sex: Female
  Weight: 76 kg

DRUGS (4)
  1. LEVOFLOXACIN [Suspect]
     Indication: UPPER RESPIRATORY TRACT INFECTION
     Route: 048
     Dates: start: 20110117, end: 20110124
  2. CIPROFLOXACIN [Suspect]
     Indication: UPPER RESPIRATORY TRACT INFECTION
     Route: 048
     Dates: start: 20110125, end: 20110128
  3. BUPIVACAINE HCL [Suspect]
     Indication: INFILTRATION ANAESTHESIA
     Dates: start: 20110131
  4. XYLOCAINE [Suspect]
     Indication: INFILTRATION ANAESTHESIA
     Dates: start: 20110131

REACTIONS (3)
  - THROMBOCYTOPENIA [None]
  - HAEMATOMA [None]
  - UTERINE HAEMORRHAGE [None]
